FAERS Safety Report 7712258-1 (Version None)
Quarter: 2011Q3

REPORT INFORMATION
  Report Type: 
  Country: None (occurrence: None)
  Receive Date: 20110826
  Receipt Date: 20110815
  Transmission Date: 20111222
  Serious: Yes (Other)
  Sender: FDA-Public Use
  Company Number: US-PFIZER INC-2011187831

PATIENT
  Sex: Female
  Weight: 63 kg

DRUGS (5)
  1. PROTONIX [Concomitant]
     Dosage: UNK
  2. PRISTIQ [Suspect]
     Indication: DEPRESSION
     Dosage: 50 MG, 1X/DAY
     Route: 048
     Dates: start: 20100401
  3. MULTI-VITAMINS [Concomitant]
     Dosage: UNK
  4. DETROL LA [Concomitant]
     Dosage: UNK
  5. PEPSIN [Concomitant]
     Dosage: UNK

REACTIONS (2)
  - COELIAC DISEASE [None]
  - TENDON RUPTURE [None]
